FAERS Safety Report 16506334 (Version 1)
Quarter: 2019Q3

REPORT INFORMATION
  Report Type: Spontaneous
  Country: US (occurrence: US)
  Receive Date: 20190701
  Receipt Date: 20190701
  Transmission Date: 20191004
  Serious: No
  Sender: FDA-Public Use
  Company Number: US-TEVA-2019-US-1060515

PATIENT

DRUGS (1)
  1. DULOXETINE ACTAVIS [Suspect]
     Active Substance: DULOXETINE
     Dates: start: 201902

REACTIONS (2)
  - Product substitution issue [Unknown]
  - Therapeutic product effect decreased [Unknown]
